FAERS Safety Report 23924382 (Version 1)
Quarter: 2024Q2

REPORT INFORMATION
  Report Type: Spontaneous
  Country: DE (occurrence: DE)
  Receive Date: 20240531
  Receipt Date: 20240531
  Transmission Date: 20240716
  Serious: Yes (Other)
  Sender: FDA-Public Use
  Company Number: DE-PROCTER+GAMBLE-PH22013687

PATIENT
  Age: 71 Year
  Sex: Male
  Weight: 70 kg

DRUGS (22)
  1. CLOZAPINE [Suspect]
     Active Substance: CLOZAPINE
     Dosage: 1 TABLET, 150 MG (MIX-UP) CERTAIN EXPOSURE
     Route: 048
  2. PANTOPRAZOLE [Suspect]
     Active Substance: PANTOPRAZOLE
     Dosage: UNK UNK, 1X/DAY
     Route: 048
  3. LEVETIRACETAM [Suspect]
     Active Substance: LEVETIRACETAM
     Dosage: 1 TABLET (MIX-UP) CERTAIN EXPOSURE
     Route: 048
  4. FERRO-SANOL DUODENAL [Suspect]
     Active Substance: FERROUS GLYCINE SULFATE
     Dosage: 1 CAPSUL, 2 /DAY, 100 MG HARD CAPSULES, 1-0-1 (MAINTENANCE MEDICATION), CERTAIN EXPOSURE
     Route: 048
  5. METOPROLOL TARTRATE [Suspect]
     Active Substance: METOPROLOL TARTRATE
     Dosage: 1 TABLET, 47.5 MG, (MIX-UP) CERTAIN EXPOSURE
     Route: 048
  6. PRAMIPEXOLE [Suspect]
     Active Substance: PRAMIPEXOLE\PRAMIPEXOLE DIHYDROCHLORIDE
     Dosage: 1 TABLET, 3 /DAY, 1-1-1-0 TABLET(S) 0.35 MG (MAINTENANCE MEDICATION), CERTAIN EXPOSURE
     Route: 048
  7. FOLIC ACID [Suspect]
     Active Substance: FOLIC ACID
     Dosage: 5 MILLIGRAM, (MIX-UP) CERTAIN EXPOSURE
     Route: 048
  8. AKINETON [Suspect]
     Active Substance: BIPERIDEN HYDROCHLORIDE
     Dosage: 1 TABLET (MIX-UP) CERTAIN EXPOSURE, AKINETON RETARD 4
     Route: 048
  9. TORSEMIDE [Suspect]
     Active Substance: TORSEMIDE
     Dosage: 1 TABLET, 1 /DAY, 10 TABLETS, 1-0-0 TABLET(S) (MAINTENANCE MEDICATION), CERTAIN EXPOSURE
     Route: 048
  10. QUETIAPINE FUMARATE [Suspect]
     Active Substance: QUETIAPINE FUMARATE
     Dosage: 1 TABLET (MIX-UP) CERTAIN EXPOSURE, QUETIAPINE 100
     Route: 048
  11. CHOLECALCIFEROL [Suspect]
     Active Substance: CHOLECALCIFEROL
     Dosage: 20000 INTERNATIONAL UNIT, 1 /WEEK, WEDNESDAYS (1/W) (MAINTENANCE MEDICATION), CERTAIN EXPOSURE
     Route: 048
  12. CALCIUM CARBONATE [Suspect]
     Active Substance: CALCIUM CARBONATE
     Dosage: 1 TABLET, 1 /DAY, 1000 MG, 1-0-0 (MAINTENANCE MEDICATION), CERTAIN EXPOSURE
     Route: 048
  13. POLYETHYLENE GLYCOLS [Suspect]
     Active Substance: POLYETHYLENE GLYCOLS
     Dosage: UNK, 1X/DAY
     Route: 048
  14. HALDOL [Suspect]
     Active Substance: HALOPERIDOL
     Dosage: 1 TABLET (MIX-UP) CERTAIN EXPOSURE, HALDOL 2
     Route: 048
  15. FERROUS GLYCINE SULFATE [Suspect]
     Active Substance: FERROUS GLYCINE SULFATE
     Dosage: 100 MILLIGRAM, (MIX-UP) CERTAIN EXPOSURE
     Route: 048
  16. TAMSULOSIN HYDROCHLORIDE [Suspect]
     Active Substance: TAMSULOSIN HYDROCHLORIDE
     Dosage: 01 DOSAGE FORM, 1 /DAY, 0-1-0 (MAINTENANCE MEDICATION), CERTAIN EXPOSURE, TAMSULOSIN 0.4
     Route: 048
  17. VITAMIN B12 [Suspect]
     Active Substance: CYANOCOBALAMIN
     Dosage: UNK UNK, 1X/DAY
     Route: 048
  18. XARELTO [Suspect]
     Active Substance: RIVAROXABAN
     Dosage: 1 TABLET, 1 /DAY, 20 MG, 1-0-0 TABLET(S) (MAINTENANCE MEDICATION), CERTAIN EXPOSURE
     Route: 048
  19. CHOLECALCIFEROL [Suspect]
     Active Substance: CHOLECALCIFEROL
     Dosage: 1 TABLET, (MIX-UP) CERTAIN EXPOSURE
     Route: 048
  20. AKINETON [Suspect]
     Active Substance: BIPERIDEN HYDROCHLORIDE
     Dosage: 1 TABLET, 1 /DAY, 1-0-0 TABLET(S) (MAINTENANCE MEDICATION), CERTAIN EXPOSURE, AKINETON 4
     Route: 048
  21. LEVODOPA [Suspect]
     Active Substance: LEVODOPA
     Dosage: 1 TABLET, 3 /DAY, 1-1-1-0 TABLET(S) 50/12.5 (MAINTENANCE MEDICATION), CERTAIN EXPOSURE
     Route: 048
  22. AMIODARONE HYDROCHLORIDE [Suspect]
     Active Substance: AMIODARONE HYDROCHLORIDE
     Dosage: 1 TABLET, 1 /DAY, 1-0-0 TABLET(S) (MAINTENANCE MEDICATION), CERTAIN EXPOSURE, AMIODARONE 200
     Route: 048

REACTIONS (9)
  - Renal failure [Recovering/Resolving]
  - Suicidal ideation [Recovering/Resolving]
  - Sopor [Recovering/Resolving]
  - Bradypnoea [Recovering/Resolving]
  - Bradycardia [Recovering/Resolving]
  - Diastolic hypotension [Recovering/Resolving]
  - Miosis [Recovering/Resolving]
  - Hypotension [Recovering/Resolving]
  - Polyuria [Recovering/Resolving]
